FAERS Safety Report 6149981-9 (Version None)
Quarter: 2009Q2

REPORT INFORMATION
  Report Type: 
  Country: None (occurrence: None)
  Receive Date: 20090409
  Receipt Date: 20090402
  Transmission Date: 20091009
  Serious: Yes (Death)
  Sender: FDA-Public Use
  Company Number: A0777784A

PATIENT
  Age: 42 Year
  Sex: Male

DRUGS (14)
  1. ADVAIR HFA [Suspect]
     Indication: ASTHMA
     Dosage: 1PUFF TWICE PER DAY
     Route: 055
  2. LOVASTATIN [Concomitant]
  3. GLIMEPIRIDE [Concomitant]
  4. THEOPHYLLINE [Concomitant]
  5. SINGULAIR [Concomitant]
  6. BECLOMETHASONE DIPROPIONATE [Concomitant]
  7. GLUCOPHAGE [Concomitant]
  8. ACIPHEX [Concomitant]
  9. MS CONTIN [Concomitant]
  10. VICODIN [Concomitant]
  11. ALBUTEROL [Concomitant]
  12. ATIVAN [Concomitant]
  13. RESTORIL [Concomitant]
  14. NEURONTIN [Concomitant]

REACTIONS (5)
  - CARDIO-RESPIRATORY ARREST [None]
  - FAECAL INCONTINENCE [None]
  - FALL [None]
  - MALAISE [None]
  - SUDDEN DEATH [None]
